FAERS Safety Report 17050175 (Version 2)
Quarter: 2020Q2

REPORT INFORMATION
  Report Type: Spontaneous
  Country: AU (occurrence: AU)
  Receive Date: 20191119
  Receipt Date: 20200504
  Transmission Date: 20200713
  Serious: Yes (Hospitalization)
  Sender: FDA-Public Use
  Company Number: AU-CELGENEUS-AUS-20190106819

PATIENT
  Age: 69 Year
  Sex: Female
  Weight: 82.3 kg

DRUGS (24)
  1. AZACITIDINE. [Suspect]
     Active Substance: AZACITIDINE
     Indication: MYELODYSPLASTIC SYNDROME
     Route: 058
     Dates: start: 20180226, end: 20180806
  2. AZACITIDINE. [Suspect]
     Active Substance: AZACITIDINE
     Dosage: 75 MILLIGRAM/SQ. METER
     Route: 041
     Dates: start: 20181009
  3. VENETOCLAX. [Concomitant]
     Active Substance: VENETOCLAX
     Dosage: 20 MILLIGRAM
     Route: 048
     Dates: start: 20181203
  4. CLEXANE [Concomitant]
     Active Substance: ENOXAPARIN SODIUM
     Indication: CATHETER SITE SWELLING
  5. VENETOCLAX. [Concomitant]
     Active Substance: VENETOCLAX
     Indication: MYELODYSPLASTIC SYNDROME
     Dosage: 200 MILLIGRAM
     Route: 048
     Dates: start: 20181008, end: 20181118
  6. THYROXINE [Concomitant]
     Active Substance: LEVOTHYROXINE
     Indication: HYPOTHYROIDISM
     Dosage: 50 MICROGRAM
     Route: 048
     Dates: start: 2017
  7. ALLERSOOTHE [Concomitant]
     Indication: DRUG ERUPTION
     Dosage: 2 TABLET
     Route: 048
     Dates: start: 20181009
  8. NOXAFIL [Concomitant]
     Active Substance: POSACONAZOLE
     Indication: ANTIFUNGAL PROPHYLAXIS
     Dosage: 300 MILLIGRAM
     Route: 048
     Dates: start: 20180208, end: 20181001
  9. TAZOCIN [Concomitant]
     Active Substance: PIPERACILLIN SODIUM\TAZOBACTAM SODIUM
     Indication: FEBRILE NEUTROPENIA
     Dosage: 18 MILLIGRAM
     Route: 041
     Dates: start: 20181114, end: 20181117
  10. TAZOCIN [Concomitant]
     Active Substance: PIPERACILLIN SODIUM\TAZOBACTAM SODIUM
     Indication: CELLULITIS
  11. EXJADE [Concomitant]
     Active Substance: DEFERASIROX
     Indication: IRON OVERLOAD
     Dosage: 125 MILLIGRAM
     Route: 048
     Dates: start: 20181030
  12. POTASSIUM CHLORIDE. [Concomitant]
     Active Substance: POTASSIUM CHLORIDE
     Indication: ROUTINE HEALTH MAINTENANCE
     Dosage: 2400 MILLIGRAM
     Route: 048
     Dates: start: 201808
  13. NOXAFIL [Concomitant]
     Active Substance: POSACONAZOLE
     Dosage: 300 MILLIGRAM
     Route: 048
     Dates: start: 20181126, end: 20190118
  14. CIPROFLOXACIN. [Concomitant]
     Active Substance: CIPROFLOXACIN
     Indication: PSEUDOMONAS INFECTION
     Route: 065
     Dates: start: 20181206, end: 20181207
  15. AUGMENTIN DUO FORTE [Concomitant]
     Active Substance: AMOXICILLIN\CLAVULANATE POTASSIUM
     Indication: CELLULITIS
     Route: 065
     Dates: start: 20181212, end: 20181217
  16. CLEXANE [Concomitant]
     Active Substance: ENOXAPARIN SODIUM
     Indication: DEEP VEIN THROMBOSIS
     Dosage: 40 MILLIGRAM
     Route: 058
     Dates: start: 20181010
  17. TAZOCIN [Concomitant]
     Active Substance: PIPERACILLIN SODIUM\TAZOBACTAM SODIUM
     Indication: ERYTHEMA
     Dosage: 18 MILLIGRAM
     Route: 041
     Dates: start: 20190113
  18. ONDANSETRON [Concomitant]
     Active Substance: ONDANSETRON
     Indication: ANTIEMETIC SUPPORTIVE CARE
     Route: 048
     Dates: start: 20180226
  19. CEFALEXIN [Concomitant]
     Active Substance: CEPHALEXIN
     Indication: ERYTHEMA
     Dosage: 3 GRAM
     Route: 048
     Dates: start: 20181117, end: 20181122
  20. ALLOPURINOL. [Concomitant]
     Active Substance: ALLOPURINOL
     Indication: PROPHYLAXIS
     Dosage: 300 MILLIGRAM
     Route: 048
     Dates: start: 20181012, end: 20181224
  21. CEFALEXIN [Concomitant]
     Active Substance: CEPHALEXIN
     Indication: PROPHYLAXIS
     Dosage: 250 MILLIGRAM
     Route: 048
     Dates: start: 20181123
  22. PANTOPRAZOLE [Concomitant]
     Active Substance: PANTOPRAZOLE
     Indication: GASTROOESOPHAGEAL REFLUX DISEASE
     Dosage: 40 MILLIGRAM
     Route: 048
     Dates: start: 20180808
  23. MAGNESIUM [Concomitant]
     Active Substance: MAGNESIUM
     Indication: ROUTINE HEALTH MAINTENANCE
     Dosage: 2 GRAM
     Route: 048
     Dates: start: 201808
  24. TAZOCIN [Concomitant]
     Active Substance: PIPERACILLIN SODIUM\TAZOBACTAM SODIUM
     Indication: INFLUENZA
     Dosage: 18 MILLIGRAM
     Route: 041
     Dates: start: 20181207, end: 20181212

REACTIONS (4)
  - Cellulitis [Recovered/Resolved]
  - Influenza [Recovered/Resolved]
  - Pseudomonal skin infection [Recovered/Resolved]
  - Febrile neutropenia [Recovered/Resolved]

NARRATIVE: CASE EVENT DATE: 20190113
